FAERS Safety Report 13869658 (Version 15)
Quarter: 2022Q1

REPORT INFORMATION
  Report Type: Report from Study
  Country: CA (occurrence: CA)
  Receive Date: 20170815
  Receipt Date: 20220210
  Transmission Date: 20220423
  Serious: Yes (Hospitalization, Other)
  Sender: FDA-Public Use
  Company Number: PHHY2016CA101833

PATIENT
  Sex: Male

DRUGS (14)
  1. SANDOSTATIN [Suspect]
     Active Substance: OCTREOTIDE ACETATE
     Indication: Carcinoid tumour
     Dosage: BID
     Route: 058
     Dates: start: 20160712, end: 201608
  2. SANDOSTATIN [Suspect]
     Active Substance: OCTREOTIDE ACETATE
  3. SANDOSTATIN [Suspect]
     Active Substance: OCTREOTIDE ACETATE
  4. SANDOSTATIN LAR DEPOT [Suspect]
     Active Substance: OCTREOTIDE ACETATE
     Indication: Carcinoid tumour
     Dosage: 30 MG, QMO  (ONCE A MONTH)
     Route: 030
     Dates: start: 20160731
  5. SANDOSTATIN LAR DEPOT [Suspect]
     Active Substance: OCTREOTIDE ACETATE
     Indication: Neuroendocrine tumour
     Dosage: 30 MG, QMO
     Route: 030
     Dates: start: 20170517
  6. SANDOSTATIN LAR DEPOT [Suspect]
     Active Substance: OCTREOTIDE ACETATE
     Dosage: 30 MG, QMO (EVERY 4 WEEKS)
     Route: 030
     Dates: start: 20170911
  7. SANDOSTATIN LAR DEPOT [Suspect]
     Active Substance: OCTREOTIDE ACETATE
     Dosage: UNK
     Route: 030
     Dates: start: 20191211
  8. SANDOSTATIN LAR DEPOT [Suspect]
     Active Substance: OCTREOTIDE ACETATE
     Dosage: 30 MG, QMO (ONCE A MONTH)
     Route: 030
     Dates: start: 20160731
  9. OCTREOTIDE [Suspect]
     Active Substance: OCTREOTIDE
     Indication: Carcinoid tumour
     Dosage: UNK
     Route: 058
     Dates: start: 20170825, end: 20170825
  10. GLUMETZA [Concomitant]
     Active Substance: METFORMIN HYDROCHLORIDE
     Indication: Diabetes mellitus
     Dosage: 1000 MG, BID
     Route: 048
     Dates: start: 2019
  11. GLUMETZA [Concomitant]
     Active Substance: METFORMIN HYDROCHLORIDE
     Dosage: 2000 MG, BID
     Route: 048
  12. ROSUVASTATIN CALCIUM [Concomitant]
     Active Substance: ROSUVASTATIN CALCIUM
     Indication: Product used for unknown indication
     Dosage: 1 DF, QD
     Route: 048
  13. SILDENAFIL [Concomitant]
     Active Substance: SILDENAFIL
     Indication: Product used for unknown indication
     Dosage: 1 DOSAGE FORM, OTHER
     Route: 048
  14. IRBESARTAN AND HYDROCHLOROTHIAZIDE [Concomitant]
     Active Substance: HYDROCHLOROTHIAZIDE\IRBESARTAN
     Indication: Product used for unknown indication
     Dosage: 1 DF, QD
     Route: 065

REACTIONS (19)
  - Abdominal pain [Recovered/Resolved]
  - Pain [Recovered/Resolved]
  - Metastases to liver [Unknown]
  - Blood pressure increased [Unknown]
  - Hallucination, visual [Recovered/Resolved]
  - Metastases to liver [Recovered/Resolved]
  - Hepatic lesion [Unknown]
  - Dizziness postural [Unknown]
  - Body temperature decreased [Unknown]
  - Blood pressure fluctuation [Unknown]
  - Increased bronchial secretion [Unknown]
  - Cough [Unknown]
  - Anxiety [Unknown]
  - Blood pressure systolic increased [Unknown]
  - Fatigue [Unknown]
  - Dizziness [Unknown]
  - Blood glucose increased [Unknown]
  - Needle issue [Unknown]
  - Injection site pain [Unknown]

NARRATIVE: CASE EVENT DATE: 20170101
